FAERS Safety Report 4484158-4 (Version None)
Quarter: 2004Q4

REPORT INFORMATION
  Report Type: 
  Country: None (occurrence: None)
  Receive Date: 20041025
  Receipt Date: 20041015
  Transmission Date: 20050328
  Serious: Yes (Disabling)
  Sender: FDA-Public Use
  Company Number: US-MERCK-0410USA02411

PATIENT
  Age: 62 Year
  Sex: Female

DRUGS (1)
  1. VIOXX [Suspect]
     Indication: ARTHRITIS
     Route: 048
     Dates: start: 20010101, end: 20040101

REACTIONS (6)
  - ASTHENIA [None]
  - CEREBROVASCULAR ACCIDENT [None]
  - DYSPNOEA [None]
  - HAEMORRHAGE [None]
  - OEDEMA PERIPHERAL [None]
  - PAIN [None]
